FAERS Safety Report 8771065 (Version 5)
Quarter: 2012Q4

REPORT INFORMATION
  Report Type: 
  Country: US (occurrence: US)
  Receive Date: 20120906
  Receipt Date: 20121213
  Transmission Date: 20130627
  Serious: Yes (Death)
  Sender: FDA-Public Use
  Company Number: US-PFIZER INC-2012204980

PATIENT
  Age: 51 Year
  Sex: Male
  Weight: 108.84 kg

DRUGS (7)
  1. TOFACITINIB CITRATE [Suspect]
     Indication: PSORIASIS
     Dosage: 10 mg, 2x/day
     Route: 048
     Dates: start: 20120620, end: 20120819
  2. OXYCODONE HYDROCHLORIDE [Suspect]
     Indication: BACK PAIN
     Dosage: 15 mg, as needed
     Route: 048
     Dates: start: 20110111
  3. METHADONE HYDROCHLORIDE [Suspect]
     Indication: BACK PAIN
     Dosage: 10 mg, 3x/day
     Route: 048
     Dates: start: 20110111
  4. ELAVIL [Suspect]
     Indication: SLEEP DISORDER
     Dosage: 100 mg, 1x/day
     Route: 048
     Dates: start: 20110901
  5. LISINOPRIL [Concomitant]
     Indication: HYPERTENSION
     Dosage: 20 mg, 1x/day
     Route: 048
     Dates: start: 20100901
  6. ULTRAM [Concomitant]
     Indication: PAIN MANAGEMENT
     Dosage: 50 mg, 3x/day
     Route: 048
     Dates: start: 20100901
  7. ALBUTEROL [Concomitant]
     Indication: ASTHMA
     Dosage: 3 puffs, 3x/day
     Route: 055
     Dates: start: 20111113

REACTIONS (2)
  - Sudden death [Fatal]
  - Cardiac arrest [Fatal]
